FAERS Safety Report 6016260-X (Version None)
Quarter: 2008Q4

REPORT INFORMATION
  Report Type: 
  Country: None (occurrence: None)
  Receive Date: 20081222
  Receipt Date: 20081217
  Transmission Date: 20090506
  Serious: Yes (Hospitalization, Other)
  Sender: FDA-Public Use
  Company Number: IE-ASTRAZENECA-2008AC03187

PATIENT
  Age: 52 Year
  Sex: Female

DRUGS (6)
  1. BUPIVACAINE [Suspect]
     Indication: EPIDURAL ANAESTHESIA
     Dosage: BOLUS OF 10 ML OF 0.25 % BUPIVACAINE
     Route: 008
  2. BUPIVACAINE [Suspect]
     Dosage: 8 ML/HR OF 0.1% BUPIVACAINE
     Route: 008
  3. BUPIVACAINE [Suspect]
     Dosage: 8 ML/HR OF 0.1% BUPIVACAINE
     Route: 041
  4. FENTANYL-100 [Concomitant]
     Indication: EPIDURAL ANAESTHESIA
     Dosage: BOLUS OF 5 UG/ML
     Route: 008
  5. FENTANYL-100 [Concomitant]
     Dosage: 2 UG/ML
     Route: 008
  6. FENTANYL-100 [Concomitant]
     Dosage: 16 MG/HR
     Route: 041

REACTIONS (2)
  - INCORRECT ROUTE OF DRUG ADMINISTRATION [None]
  - TACHYCARDIA [None]
